FAERS Safety Report 4310373-6 (Version None)
Quarter: 2004Q1

REPORT INFORMATION
  Report Type: 
  Country: None (occurrence: None)
  Receive Date: 20040302
  Receipt Date: 20040211
  Transmission Date: 20041129
  Serious: Yes (Death, Hospitalization)
  Sender: FDA-Public Use
  Company Number: 12508859

PATIENT
  Age: 54 Year
  Sex: Male

DRUGS (2)
  1. ERBITUX (CETUXIMAB) [Suspect]
     Indication: COLORECTAL CANCER
     Dosage: 400 MILLIGRAM/SQ.METER
     Route: 042
     Dates: start: 20040203, end: 20040203
  2. CAMPTOSAR [Suspect]
     Indication: COLORECTAL CANCER
     Dosage: 665 MILLIGRAM
     Route: 042
     Dates: start: 20040203, end: 20040203

REACTIONS (4)
  - BLOOD BILIRUBIN INCREASED [None]
  - BLOOD LACTATE DEHYDROGENASE INCREASED [None]
  - JAUNDICE [None]
  - PANCYTOPENIA [None]
